FAERS Safety Report 7590343-5 (Version None)
Quarter: 2011Q3

REPORT INFORMATION
  Report Type: 
  Country: None (occurrence: None)
  Receive Date: 20110705
  Receipt Date: 20110621
  Transmission Date: 20111222
  Serious: Yes (Other)
  Sender: FDA-Public Use
  Company Number: FR-JNJFOC-20100303500

PATIENT
  Age: 46 Year
  Sex: Male

DRUGS (8)
  1. INFLIXIMAB [Suspect]
     Dosage: A TOTAL OF 5 INFUSIONS
     Route: 042
     Dates: end: 20070810
  2. INFLIXIMAB [Suspect]
     Indication: PSORIASIS
     Dosage: A TOTAL OF 5 INFUSIONS
     Route: 042
     Dates: end: 20070810
  3. INFLIXIMAB [Suspect]
     Dosage: GIVEN AT 0, 2 AND 6 WEEKS
     Route: 042
     Dates: start: 20070309
  4. INFLIXIMAB [Suspect]
     Indication: PSORIATIC ARTHROPATHY
     Dosage: GIVEN AT 0, 2 AND 6 WEEKS
     Route: 042
     Dates: start: 20070309
  5. INFLIXIMAB [Suspect]
     Dosage: A TOTAL OF 5 INFUSIONS
     Route: 042
     Dates: end: 20070810
  6. ENBREL [Suspect]
     Indication: PSORIATIC ARTHROPATHY
     Route: 042
     Dates: start: 20060101, end: 20060601
  7. HUMIRA [Suspect]
     Indication: PSORIATIC ARTHROPATHY
     Dates: start: 20051001, end: 20051201
  8. INFLIXIMAB [Suspect]
     Dosage: GIVEN AT 0, 2 AND 6 WEEKS
     Route: 042
     Dates: start: 20070309

REACTIONS (4)
  - PSORIASIS [None]
  - ASTHENIA [None]
  - INFLAMMATORY PAIN [None]
  - CUTANEOUS SARCOIDOSIS [None]
